FAERS Safety Report 4575557-0 (Version None)
Quarter: 2005Q1

REPORT INFORMATION
  Report Type: 
  Country: None (occurrence: None)
  Receive Date: 20050209
  Receipt Date: 20040906
  Transmission Date: 20050727
  Serious: Yes (Death, Life-Threatening, Hospitalization, Other)
  Sender: FDA-Public Use
  Company Number: JP-BRISTOL-MYERS SQUIBB COMPANY-12694246

PATIENT
  Age: 65 Year
  Sex: Male

DRUGS (1)
  1. TAXOL [Suspect]
     Indication: GASTRIC CANCER
     Dosage: ADD. DOSING: 140 MG ON 13SEP04
     Route: 041
     Dates: start: 20040730, end: 20040730

REACTIONS (9)
  - ALANINE AMINOTRANSFERASE INCREASED [None]
  - ASPARTATE AMINOTRANSFERASE INCREASED [None]
  - DEPRESSED LEVEL OF CONSCIOUSNESS [None]
  - GASTRIC CANCER [None]
  - GLUCOSE TOLERANCE IMPAIRED [None]
  - HEPATIC FUNCTION ABNORMAL [None]
  - HYPOGLYCAEMIA [None]
  - LIVER DISORDER [None]
  - WHITE BLOOD CELL COUNT DECREASED [None]
